FAERS Safety Report 18883641 (Version 2)
Quarter: 2021Q3

REPORT INFORMATION
  Report Type: Spontaneous
  Country: US (occurrence: US)
  Receive Date: 20210211
  Receipt Date: 20210719
  Transmission Date: 20211014
  Serious: Yes (Other)
  Sender: FDA-Public Use
  Company Number: US-TEVA-2021-US-1877231

PATIENT
  Age: 19 Year
  Sex: Female

DRUGS (1)
  1. MIRTAZAPINE. [Suspect]
     Active Substance: MIRTAZAPINE
     Indication: ABNORMAL BEHAVIOUR
     Route: 065

REACTIONS (2)
  - Hallucination, visual [Recovered/Resolved]
  - Temporal lobe epilepsy [Recovered/Resolved]
